FAERS Safety Report 16304052 (Version 1)
Quarter: 2019Q2

REPORT INFORMATION
  Report Type: Spontaneous
  Country: IT (occurrence: IT)
  Receive Date: 20190513
  Receipt Date: 20190513
  Transmission Date: 20190711
  Serious: Yes (Hospitalization, Other)
  Sender: FDA-Public Use
  Company Number: IT-SA-2019SA128920

PATIENT
  Age: 70 Year
  Sex: Female

DRUGS (4)
  1. RIFADIN [Suspect]
     Active Substance: RIFAMPIN
     Indication: DEVICE RELATED INFECTION
     Dosage: 600 MG, QD
     Route: 042
     Dates: start: 20190427, end: 20190430
  2. EUTIROX [Concomitant]
     Active Substance: LEVOTHYROXINE SODIUM
  3. CLEXANE [Concomitant]
     Active Substance: ENOXAPARIN SODIUM
  4. DILATREND [Concomitant]
     Active Substance: CARVEDILOL

REACTIONS (2)
  - Urticaria [Recovering/Resolving]
  - Angioedema [Recovering/Resolving]

NARRATIVE: CASE EVENT DATE: 20190430
